FAERS Safety Report 21705995 (Version 3)
Quarter: 2023Q2

REPORT INFORMATION
  Report Type: Spontaneous
  Country: JP (occurrence: JP)
  Receive Date: 20221209
  Receipt Date: 20230501
  Transmission Date: 20230721
  Serious: Yes (Death, Life-Threatening, Hospitalization, Other)
  Sender: FDA-Public Use
  Company Number: JP-ELI_LILLY_AND_COMPANY-JP202210008493

PATIENT
  Age: 81 Year
  Sex: Female

DRUGS (29)
  1. VERZENIO [Suspect]
     Active Substance: ABEMACICLIB
     Indication: Breast cancer recurrent
     Dosage: 150 MG, BID
     Route: 048
     Dates: start: 20221013, end: 20221025
  2. AZOSEMIDE [Suspect]
     Active Substance: AZOSEMIDE
     Indication: Diuretic therapy
     Dosage: 60 MG, DAILY
     Route: 048
     Dates: end: 20221107
  3. FUROSEMIDE [Suspect]
     Active Substance: FUROSEMIDE
     Indication: Diuretic therapy
     Dosage: 60 MG, DAILY
     Route: 048
     Dates: end: 20221019
  4. FUROSEMIDE [Suspect]
     Active Substance: FUROSEMIDE
     Dosage: 40 MG, DAILY
     Route: 048
     Dates: start: 20221224, end: 20221227
  5. FUROSEMIDE [Suspect]
     Active Substance: FUROSEMIDE
     Dosage: 40 MG, BID
     Route: 048
     Dates: start: 20221228, end: 20230111
  6. SPIRONOLACTONE [Suspect]
     Active Substance: SPIRONOLACTONE
     Indication: Diuretic therapy
     Dosage: 25 MG, DAILY
     Route: 048
     Dates: start: 20221014, end: 20221107
  7. SPIRONOLACTONE [Suspect]
     Active Substance: SPIRONOLACTONE
     Dosage: 12.5 MG, DAILY
     Route: 048
     Dates: start: 20221108, end: 20221116
  8. SPIRONOLACTONE [Suspect]
     Active Substance: SPIRONOLACTONE
     Dosage: 25 MG, DAILY
     Route: 048
     Dates: start: 20221117, end: 20221123
  9. SPIRONOLACTONE [Suspect]
     Active Substance: SPIRONOLACTONE
     Dosage: 12.5 MG, DAILY
     Route: 048
     Dates: start: 20221124, end: 20221201
  10. SPIRONOLACTONE [Suspect]
     Active Substance: SPIRONOLACTONE
     Dosage: 25 MG, DAILY
     Route: 048
     Dates: start: 20221201, end: 20230118
  11. FASLODEX [Concomitant]
     Active Substance: FULVESTRANT
     Dosage: 500 MG, CYCLICAL
     Route: 030
     Dates: start: 20221011, end: 20221206
  12. ALFACALCIDOL [Concomitant]
     Active Substance: ALFACALCIDOL
     Dosage: 0.5 UG, DAILY
     Route: 048
     Dates: end: 20221107
  13. CALCIUM CARBONATE\CHOLECALCIFEROL\MAGNESIUM CARBONATE [Concomitant]
     Active Substance: CALCIUM CARBONATE\CHOLECALCIFEROL\MAGNESIUM CARBONATE
     Dosage: 2 DOSAGE FORM, DAILY
     Route: 048
     Dates: start: 20220816, end: 20221019
  14. CALCIUM CARBONATE\CHOLECALCIFEROL\MAGNESIUM CARBONATE [Concomitant]
     Active Substance: CALCIUM CARBONATE\CHOLECALCIFEROL\MAGNESIUM CARBONATE
     Dosage: 1 DOSAGE FORM, DAILY
     Route: 048
     Dates: start: 20221019, end: 20221025
  15. TRAMCET [Concomitant]
     Active Substance: ACETAMINOPHEN\TRAMADOL
     Dosage: 1 DOSAGE FORM, DAILY
     Route: 048
     Dates: end: 20220815
  16. TRAMCET [Concomitant]
     Active Substance: ACETAMINOPHEN\TRAMADOL
     Dosage: 1 DOSAGE FORM, BID
     Route: 048
     Dates: start: 20220816, end: 20221107
  17. AZILSARTAN KAMEDOXOMIL [Concomitant]
     Active Substance: AZILSARTAN KAMEDOXOMIL
     Dosage: 10 MG, DAILY
     Route: 048
     Dates: end: 20221107
  18. VONOPRAZAN FUMARATE [Concomitant]
     Active Substance: VONOPRAZAN FUMARATE
     Dosage: 10 MG, DAILY
     Route: 048
     Dates: end: 20230118
  19. ASPIRIN [Concomitant]
     Active Substance: ASPIRIN
     Dosage: 100 MG, DAILY
     Route: 048
     Dates: end: 20230118
  20. BISOPROLOL FUMARATE [Concomitant]
     Active Substance: BISOPROLOL FUMARATE
     Dosage: 2.5 MG, DAILY
     Route: 048
     Dates: end: 20221221
  21. FEBUXOSTAT [Concomitant]
     Active Substance: FEBUXOSTAT
     Dosage: 10 MG, DAILY
     Route: 048
     Dates: end: 20230118
  22. NIFEDIPINE CR SANWA [Concomitant]
     Dosage: 20 MG, BID
     Route: 048
     Dates: end: 20230118
  23. LINAGLIPTIN [Concomitant]
     Active Substance: LINAGLIPTIN
     Dosage: 5 MG, DAILY
     Route: 048
     Dates: end: 20221107
  24. LINAGLIPTIN [Concomitant]
     Active Substance: LINAGLIPTIN
     Dosage: 5 MG, DAILY
     Route: 048
     Dates: start: 20221209, end: 20230118
  25. SENNOSIDES [Concomitant]
     Active Substance: SENNOSIDES
     Indication: Constipation
     Dosage: 12MG OR 24MG, PRN
     Route: 048
     Dates: start: 20221006, end: 20230107
  26. LOXOPROFEN SODIUM [Concomitant]
     Active Substance: LOXOPROFEN SODIUM
     Dosage: UNK, DAILY
     Route: 062
     Dates: start: 20220816, end: 20221007
  27. KETOPROFEN [Concomitant]
     Active Substance: KETOPROFEN
     Dosage: 20 MG, DAILY
     Route: 062
     Dates: start: 20221009, end: 20230110
  28. DENOSUMAB [Concomitant]
     Active Substance: DENOSUMAB
     Dosage: 120 MG, MONTHLY (1/M)
     Route: 058
     Dates: start: 20220816, end: 20221011
  29. INFLUENZA VIRUS VACCINE [Concomitant]
     Active Substance: INFLUENZA VIRUS VACCINE
     Dosage: 0.5 ML, SINGLE
     Route: 058
     Dates: start: 20221117, end: 20221117

REACTIONS (14)
  - Hepatic failure [Fatal]
  - Circulatory collapse [Unknown]
  - Acute kidney injury [Unknown]
  - Hypercalcaemia [Unknown]
  - Dehydration [Unknown]
  - Hypersplenism [Unknown]
  - Gastric ulcer haemorrhage [Unknown]
  - Haemoglobin decreased [Recovering/Resolving]
  - Hyperkalaemia [Recovering/Resolving]
  - Decubitus ulcer [Unknown]
  - Eczema asteatotic [Unknown]
  - Dysphagia [Unknown]
  - Skin erosion [Unknown]
  - Submandibular abscess [Unknown]

NARRATIVE: CASE EVENT DATE: 20221018
